FAERS Safety Report 7380230-X (Version None)
Quarter: 2011Q1

REPORT INFORMATION
  Report Type: 
  Country: None (occurrence: None)
  Receive Date: 20110329
  Receipt Date: 20110209
  Transmission Date: 20110831
  Serious: No
  Sender: FDA-Public Use
  Company Number: A0912798A

PATIENT
  Sex: Female

DRUGS (1)
  1. LAMICTAL XR [Suspect]
     Dosage: 200MG UNKNOWN
     Route: 065
     Dates: start: 20110106

REACTIONS (2)
  - RASH [None]
  - HYPERSENSITIVITY [None]
